FAERS Safety Report 9351559 (Version 4)
Quarter: 2013Q4

REPORT INFORMATION
  Report Type: Report from Study
  Country: IT (occurrence: IT)
  Receive Date: 20130617
  Receipt Date: 20131213
  Transmission Date: 20140711
  Serious: Yes (Hospitalization, Other)
  Sender: FDA-Public Use
  Company Number: PHHO2013IT007891

PATIENT
  Sex: 0

DRUGS (4)
  1. AFINITOR [Suspect]
     Indication: BREAST CANCER METASTATIC
     Dosage: 5 MG, QD
     Route: 048
     Dates: start: 20130111, end: 20130609
  2. AFINITOR [Suspect]
     Dosage: UNK
     Route: 048
     Dates: start: 20130620
  3. EXEMESTANE [Suspect]
     Indication: BREAST CANCER METASTATIC
     Dosage: 25 MG, QD
     Route: 048
     Dates: start: 20130111, end: 20130609
  4. EXEMESTANE [Suspect]
     Dosage: UNK
     Route: 048
     Dates: start: 20130620

REACTIONS (1)
  - Pneumonia [Recovered/Resolved]
